FAERS Safety Report 8795434 (Version 1)
Quarter: 2012Q4

REPORT INFORMATION
  Report Type: 
  Country: FR (occurrence: FR)
  Receive Date: 20120917
  Receipt Date: 20120917
  Transmission Date: 20130627
  Serious: Yes (Hospitalization)
  Sender: FDA-Public Use
  Company Number: FR-ABBOTT-12P-056-0945511-00

PATIENT
  Age: 67 Year
  Sex: Female

DRUGS (2)
  1. CLIMASTON [Suspect]
     Indication: MENOPAUSE
     Route: 048
     Dates: end: 201204
  2. CLIMASTON 1 MG/5MG [Suspect]
     Indication: HORMONE REPLACEMENT THERAPY

REACTIONS (2)
  - Venous thrombosis limb [Recovered/Resolved]
  - Pulmonary embolism [Recovered/Resolved]
